FAERS Safety Report 15331750 (Version 1)
Quarter: 2018Q3

REPORT INFORMATION
  Report Type: Spontaneous
  Country: US (occurrence: US)
  Receive Date: 20180829
  Receipt Date: 20180829
  Transmission Date: 20181010
  Serious: Yes (Other)
  Sender: FDA-Public Use
  Company Number: US-ELI_LILLY_AND_COMPANY-US201808012019

PATIENT
  Sex: Male

DRUGS (5)
  1. CIALIS [Suspect]
     Active Substance: TADALAFIL
     Dosage: 5 MG, DAILY OR AS NEEDED
     Route: 065
  2. CIALIS [Suspect]
     Active Substance: TADALAFIL
     Dosage: 20 MG, DAILY OR AS NEEDED
     Route: 065
  3. CIALIS [Suspect]
     Active Substance: TADALAFIL
     Indication: ERECTILE DYSFUNCTION
     Dosage: 2.5 MG, DAILY OR AS NEEDED
     Route: 065
  4. CIALIS [Suspect]
     Active Substance: TADALAFIL
     Dosage: 5 MG, DAILY OR AS NEEDED
     Route: 065
  5. CIALIS [Suspect]
     Active Substance: TADALAFIL
     Dosage: 10 MG, DAILY OR AS NEEDED
     Route: 065

REACTIONS (9)
  - Prostate cancer [Recovered/Resolved]
  - Heart valve incompetence [Recovered/Resolved]
  - Headache [Unknown]
  - Drug ineffective [Unknown]
  - Pulmonary hypertension [Unknown]
  - Heart rate increased [Unknown]
  - Flushing [Unknown]
  - Wrong technique in product usage process [Unknown]
  - Expired product administered [Unknown]
